FAERS Safety Report 17943863 (Version 1)
Quarter: 2020Q2

REPORT INFORMATION
  Report Type: Spontaneous
  Country: TR (occurrence: TR)
  Receive Date: 20200625
  Receipt Date: 20200625
  Transmission Date: 20200714
  Serious: Yes (Hospitalization)
  Sender: FDA-Public Use
  Company Number: TR-AVADEL LEGACY PHARMACEUTICALS, LLC-2020AVA00005

PATIENT
  Age: 25 Year
  Sex: Male

DRUGS (1)
  1. PHENYLEPHRINE [Suspect]
     Active Substance: PHENYLEPHRINE HYDROCHLORIDE
     Indication: RHINORRHOEA
     Dosage: 10 MG, 2X/DAY
     Route: 048

REACTIONS (2)
  - Bipolar disorder [Recovered/Resolved]
  - Hallucination [Recovered/Resolved]
